FAERS Safety Report 9171166 (Version 2)
Quarter: 2015Q1

REPORT INFORMATION
  Report Type: Report from Study
  Country: JP (occurrence: JP)
  Receive Date: 20130319
  Receipt Date: 20150128
  Transmission Date: 20150721
  Serious: Yes (Death)
  Sender: FDA-Public Use
  Company Number: JP-009507513-1303JPN007963

PATIENT
  Age: 2 Month
  Sex: Male
  Weight: 3.44 kg

DRUGS (6)
  1. DIAZOXIDE CAPSULES 25 MG ^MSD^ [Suspect]
     Active Substance: DIAZOXIDE
     Dosage: 3.3 MG, QD
     Route: 048
     Dates: start: 20130107, end: 20130107
  2. DIAZOXIDE CAPSULES 25 MG ^MSD^ [Suspect]
     Active Substance: DIAZOXIDE
     Dosage: 6.7 MG, TID
     Route: 048
     Dates: start: 20130105, end: 20130105
  3. ALDACTONE [Concomitant]
     Active Substance: SPIRONOLACTONE
     Indication: PULMONARY ARTERY ATRESIA
     Dosage: DAILY DOSAGE UNKNOWN
     Route: 048
     Dates: start: 201211, end: 20130107
  4. DIAZOXIDE CAPSULES 25 MG ^MSD^ [Suspect]
     Active Substance: DIAZOXIDE
     Indication: HYPOGLYCAEMIA
     Dosage: 2 DOSES OUT OF 20 MG DIVIDED IN 3 DOSES(6.7 MG 3 TIMES A DAY)
     Route: 048
     Dates: start: 20130104, end: 20130104
  5. DIAZOXIDE CAPSULES 25 MG ^MSD^ [Suspect]
     Active Substance: DIAZOXIDE
     Dosage: 1 DOSE OUT OF 20MG DIVIDED IN 3 DOSES AND 2 DOSES OUT OF 10MG DIVIDED IN 3 DOSES
     Route: 048
     Dates: start: 20130106, end: 20130106
  6. LASIX [Concomitant]
     Active Substance: FUROSEMIDE
     Indication: PULMONARY ARTERY ATRESIA
     Dosage: DAILY DOSAGE UNKNOWN
     Route: 048
     Dates: start: 201211, end: 20130107

REACTIONS (2)
  - Death [Fatal]
  - Cardiac failure [Unknown]

NARRATIVE: CASE EVENT DATE: 20130106
